FAERS Safety Report 20554080 (Version 1)
Quarter: 2022Q1

REPORT INFORMATION
  Report Type: Spontaneous
  Country: US (occurrence: None)
  Receive Date: 20220304
  Receipt Date: 20220304
  Transmission Date: 20220423
  Serious: Yes (Disabling)
  Sender: FDA-Public Use
  Company Number: None

PATIENT
  Age: 8 Year
  Sex: Female
  Weight: 27.9 kg

DRUGS (4)
  1. GUANFACINE [Suspect]
     Active Substance: GUANFACINE
     Indication: Attention deficit hyperactivity disorder
     Dosage: OTHER QUANTITY : 1 TABLET(S);?FREQUENCY : DAILY;?
     Route: 048
     Dates: start: 20220302, end: 20220303
  2. VITAMINS [Concomitant]
     Active Substance: VITAMINS
  3. MegaRed [Concomitant]
  4. MELATONIN [Concomitant]
     Active Substance: MELATONIN

REACTIONS (5)
  - Dyspnoea [None]
  - Fatigue [None]
  - Abdominal discomfort [None]
  - Insomnia [None]
  - Nightmare [None]

NARRATIVE: CASE EVENT DATE: 20220302
